FAERS Safety Report 8310293-6 (Version None)
Quarter: 2012Q2

REPORT INFORMATION
  Report Type: 
  Country: None (occurrence: None)
  Receive Date: 20120425
  Receipt Date: 20120418
  Transmission Date: 20120825
  Serious: Yes (Other)
  Sender: FDA-Public Use
  Company Number: JP-PFIZER INC-2012098276

PATIENT
  Age: 59 Year
  Sex: Male

DRUGS (2)
  1. HEPARIN [Suspect]
  2. FOSPHENYTOIN SODIUM [Suspect]
     Indication: PROPHYLAXIS
     Dosage: 15MG/KGX1
     Route: 042
     Dates: start: 20120411, end: 20120414

REACTIONS (1)
  - APLASTIC ANAEMIA [None]
